FAERS Safety Report 7457712-5 (Version None)
Quarter: 2011Q2

REPORT INFORMATION
  Report Type: 
  Country: None (occurrence: None)
  Receive Date: 20110504
  Receipt Date: 20110426
  Transmission Date: 20111010
  Serious: Yes (Hospitalization)
  Sender: FDA-Public Use
  Company Number: ES-ROCHE-772177

PATIENT
  Sex: Female
  Weight: 50 kg

DRUGS (5)
  1. LORAZEPAM [Concomitant]
     Dates: start: 20110416
  2. SIMVASTATIN [Concomitant]
     Dates: start: 20090101
  3. FLUOROURACIL [Suspect]
     Indication: COLORECTAL CANCER
     Dosage: FREQUENCY: D1,D8,D15,D22,D29, D36,FORM: 2250 MG/M2, DATE OF LAST DOSE: 12 APR 2011
     Route: 042
     Dates: start: 20110322, end: 20110419
  4. BEVACIZUMAB [Suspect]
     Indication: COLORECTAL CANCER
     Dosage: DATE OF LAST DOSE: 05 APR 2011, FREQUENCY: D1, D15, D29,D36, DOSE FORM: 5MG/KG
     Route: 042
     Dates: start: 20110322, end: 20110419
  5. IRINOTECAN [Suspect]
     Indication: COLORECTAL CANCER
     Dosage: DOSE FORM: 80 MCG/M2, FREQUENCY: D1,D8,D15,D22,D29,D36,
     Route: 042
     Dates: start: 20110322, end: 20110419

REACTIONS (1)
  - GENERAL PHYSICAL HEALTH DETERIORATION [None]
